FAERS Safety Report 7001959-9 (Version None)
Quarter: 2010Q3

REPORT INFORMATION
  Report Type: 
  Country: None (occurrence: None)
  Receive Date: 20100902
  Receipt Date: 20090727
  Transmission Date: 20110219
  Serious: Yes (Other)
  Sender: FDA-Public Use
  Company Number: 197678USA

PATIENT
  Sex: Female

DRUGS (14)
  1. METOCLOPRAMIDE [Suspect]
     Indication: IMPAIRED GASTRIC EMPTYING
     Dosage: 10 MG
     Dates: start: 20050101
  2. METOCLOPRAMIDE [Suspect]
     Indication: IMPAIRED GASTRIC EMPTYING
  3. BUPROPION [Concomitant]
  4. CLONIDINE [Concomitant]
  5. HYDRALAZINE HCL [Concomitant]
  6. FUROSEMIDE [Concomitant]
  7. BENICAR HCT [Concomitant]
  8. CYANOCOBALAMIN-TANNIN COMPLEX [Concomitant]
  9. CLONAZEPAM [Concomitant]
  10. ACTOPLUS METFORMIN [Concomitant]
  11. INSULIN GLARGINE [Concomitant]
  12. PROMETHAZINE [Concomitant]
  13. POTASSIUM CHLORIDE [Concomitant]
  14. LORATADINE [Concomitant]

REACTIONS (1)
  - TARDIVE DYSKINESIA [None]
